FAERS Safety Report 10877447 (Version 2)
Quarter: 2015Q1

REPORT INFORMATION
  Report Type: Report from Study
  Country: MK (occurrence: MK)
  Receive Date: 20150302
  Receipt Date: 20150306
  Transmission Date: 20150721
  Serious: Yes (Death, Hospitalization)
  Sender: FDA-Public Use
  Company Number: MK-ROCHE-1542623

PATIENT
  Age: 69 Year
  Sex: Male
  Weight: 55 kg

DRUGS (17)
  1. TEVAGRASTIM [Concomitant]
     Active Substance: FILGRASTIM
     Indication: NEUTROPENIA
     Route: 058
     Dates: start: 20150219, end: 20150223
  2. PARACETAMOL [Concomitant]
     Active Substance: ACETAMINOPHEN
     Route: 048
     Dates: start: 20150219, end: 20150223
  3. BLINDED PERTUZUMAB [Suspect]
     Active Substance: PERTUZUMAB
     Indication: HER-2 POSITIVE GASTRIC CANCER
     Dosage: DATE OF MOST RECENT DOSE OF PERTUZUMAB/PLACEBO PRIOR TO AE ONSET 06/FEB/2015
     Route: 042
     Dates: start: 20150116
  4. KALIUMCHLORIDE [Concomitant]
     Indication: HYPOKALAEMIA
     Route: 042
     Dates: start: 20150220, end: 20150223
  5. RINGER SOLUTION [Concomitant]
     Route: 042
     Dates: start: 20150219, end: 20150223
  6. DEXTROSA [Concomitant]
     Route: 042
     Dates: start: 20150219, end: 20150223
  7. HUMAN ALBUMIN [Concomitant]
     Active Substance: ALBUMIN (HUMAN)
     Indication: HYPOALBUMINAEMIA
     Route: 042
     Dates: start: 20150220, end: 20150223
  8. MEDAXON [Concomitant]
     Indication: INFECTION PROPHYLAXIS
     Route: 042
     Dates: start: 20150219, end: 20150223
  9. CALCIUMGLUCONAT [Concomitant]
     Indication: HYPOCALCAEMIA
     Route: 042
     Dates: start: 20150220, end: 20150223
  10. TRASTUZUMAB [Suspect]
     Active Substance: TRASTUZUMAB
     Indication: HER-2 POSITIVE GASTRIC CANCER
     Dosage: DATE OF MOST RECENT DOSE OF TRASTUZUMAB PRIOR TO AE 06/FEB/2015
     Route: 042
     Dates: start: 20150116
  11. CAPECITABINE. [Suspect]
     Active Substance: CAPECITABINE
     Indication: HER-2 POSITIVE GASTRIC CANCER
     Dosage: DATE OF MOST RECENT DOSE OF CAPECITABINE PRIOR TO AE ONSET 18/FEB/2015
     Route: 048
     Dates: start: 20150116
  12. ENALAPRIL [Concomitant]
     Active Substance: ENALAPRIL
     Indication: HYPERTENSION
     Route: 048
     Dates: start: 20090101
  13. RANITIDIN [Concomitant]
     Active Substance: RANITIDINE HYDROCHLORIDE
     Route: 042
     Dates: start: 20150219, end: 20150223
  14. FUROSEMID [Concomitant]
     Active Substance: FUROSEMIDE
     Dosage: INDICATION : STIMULATING DIURESIS
     Route: 042
     Dates: start: 20150222, end: 20150223
  15. CISPLATIN. [Suspect]
     Active Substance: CISPLATIN
     Indication: HER-2 POSITIVE GASTRIC CANCER
     Dosage: DATE OF MOST RECENT DOSE OF CISPLATIN PRIOR TO AE ONSET 06/FEB/2015
     Route: 042
     Dates: start: 20150116
  16. CIPROFLOXACIN. [Concomitant]
     Active Substance: CIPROFLOXACIN
     Indication: INFECTION PROPHYLAXIS
     Route: 042
     Dates: start: 20150219, end: 20150223
  17. NYSTATIN SOLUTION [Concomitant]
     Indication: PROPHYLAXIS
     Route: 048
     Dates: start: 20150220, end: 20150223

REACTIONS (2)
  - Pancytopenia [Not Recovered/Not Resolved]
  - Diarrhoea [Fatal]

NARRATIVE: CASE EVENT DATE: 20150218
